FAERS Safety Report 17222085 (Version 1)
Quarter: 2020Q1

REPORT INFORMATION
  Report Type: Spontaneous
  Country: US (occurrence: US)
  Receive Date: 20191231
  Receipt Date: 20191231
  Transmission Date: 20200409
  Serious: Yes (Hospitalization)
  Sender: FDA-Public Use
  Company Number: None

PATIENT
  Age: 7 Month
  Sex: Male
  Weight: 7.88 kg

DRUGS (7)
  1. SIMETHICONE (DIMETHICONE) [Concomitant]
     Active Substance: DIMETHICONE
  2. TYLENOL [Concomitant]
     Active Substance: ACETAMINOPHEN
  3. IBUPROFREN [Concomitant]
  4. INFANTS TYLENOL [Concomitant]
     Active Substance: ACETAMINOPHEN
  5. INFANTS IBUPROFEN [Concomitant]
     Active Substance: IBUPROFEN
  6. ZOFRAN [Concomitant]
     Active Substance: ONDANSETRON HYDROCHLORIDE
  7. CONCENTRATED IBUPROFEN INFANTS [Suspect]
     Active Substance: IBUPROFEN
     Indication: PYREXIA
     Dosage: ?          QUANTITY:1.25 DROP(S);?
     Route: 048
     Dates: start: 20191224, end: 20191226

REACTIONS (2)
  - Product quality issue [None]
  - Vomiting projectile [None]

NARRATIVE: CASE EVENT DATE: 20191225
